FAERS Safety Report 11640902 (Version 4)
Quarter: 2017Q2

REPORT INFORMATION
  Report Type: Spontaneous
  Country: US (occurrence: US)
  Receive Date: 20151019
  Receipt Date: 20170622
  Transmission Date: 20170829
  Serious: Yes (Hospitalization, Other)
  Sender: FDA-Public Use
  Company Number: US-009507513-1510USA008076

PATIENT
  Sex: Female

DRUGS (1)
  1. FOSAMAX [Suspect]
     Active Substance: ALENDRONATE SODIUM
     Indication: OSTEOPOROSIS
     Dosage: 70 MG, QW
     Route: 048
     Dates: start: 1999, end: 200507

REACTIONS (10)
  - Hypertension [Unknown]
  - Appendicectomy [Unknown]
  - Osteoporosis [Unknown]
  - Hysterectomy [Unknown]
  - Femur fracture [Unknown]
  - Rotator cuff syndrome [Unknown]
  - Diabetes mellitus [Unknown]
  - Cholecystectomy [Unknown]
  - Fall [Unknown]
  - Humerus fracture [Recovered/Resolved with Sequelae]

NARRATIVE: CASE EVENT DATE: 20040315
